FAERS Safety Report 21177692 (Version 1)
Quarter: 2022Q3

REPORT INFORMATION
  Report Type: Spontaneous
  Country: US (occurrence: None)
  Receive Date: 20220805
  Receipt Date: 20220805
  Transmission Date: 20221027
  Serious: Yes (Hospitalization)
  Sender: FDA-Public Use
  Company Number: None

PATIENT
  Age: 62 Year
  Sex: Female
  Weight: 81 kg

DRUGS (1)
  1. YESCARTA [Suspect]
     Active Substance: AXICABTAGENE CILOLEUCEL
     Indication: Primary mediastinal large B-cell lymphoma
     Dates: start: 20220524, end: 20220524

REACTIONS (7)
  - Lymphocyte adoptive therapy [None]
  - Cytokine release syndrome [None]
  - Neurotoxicity [None]
  - Coagulopathy [None]
  - Platelet transfusion [None]
  - Retroperitoneal haematoma [None]
  - Pain in extremity [None]

NARRATIVE: CASE EVENT DATE: 20220524
